FAERS Safety Report 24092450 (Version 2)
Quarter: 2024Q3

REPORT INFORMATION
  Report Type: Report from Study
  Country: CA (occurrence: CA)
  Receive Date: 20240715
  Receipt Date: 20240717
  Transmission Date: 20241017
  Serious: Yes (Hospitalization)
  Sender: NOVARTIS
  Company Number: CA-002147023-NVSC2024CA013641

PATIENT
  Sex: Female

DRUGS (1)
  1. GILENYA [Suspect]
     Active Substance: FINGOLIMOD HYDROCHLORIDE
     Indication: Relapsing-remitting multiple sclerosis
     Dosage: 0.5 MG, QD
     Route: 048

REACTIONS (11)
  - Localised infection [Unknown]
  - Feeling hot [Unknown]
  - Blister [Recovered/Resolved]
  - Cellulitis [Unknown]
  - Erythema [Unknown]
  - Peripheral swelling [Unknown]
  - Skin warm [Unknown]
  - Skin discolouration [Unknown]
  - Band sensation [Unknown]
  - Chest discomfort [Not Recovered/Not Resolved]
  - Musculoskeletal chest pain [Not Recovered/Not Resolved]

NARRATIVE: CASE EVENT DATE: 20240117
